FAERS Safety Report 21952128 (Version 13)
Quarter: 2024Q2

REPORT INFORMATION
  Report Type: Spontaneous
  Country: US (occurrence: US)
  Receive Date: 20230203
  Receipt Date: 20240530
  Transmission Date: 20240716
  Serious: Yes (Hospitalization, Other)
  Sender: FDA-Public Use
  Company Number: US-AMRYT PHARMACEUTICALS DAC-AEGR006243

PATIENT
  Sex: Female
  Weight: 58.957 kg

DRUGS (36)
  1. MYALEPT [Suspect]
     Active Substance: METRELEPTIN
     Indication: Congenital generalised lipodystrophy
     Dosage: 5 MILLIGRAM, QD
     Dates: start: 20191029
  2. MYALEPT [Suspect]
     Active Substance: METRELEPTIN
     Dosage: UNK
     Dates: start: 2020
  3. MYALEPT [Suspect]
     Active Substance: METRELEPTIN
     Dosage: UNK
     Route: 030
     Dates: start: 20211010
  4. MYALEPT [Suspect]
     Active Substance: METRELEPTIN
     Dosage: 5 MILLIGRAM (1 ML OR 100 UNITS), QD
     Route: 058
  5. MYALEPT [Suspect]
     Active Substance: METRELEPTIN
     Dosage: 5 MILLIGRAM, BID
     Route: 058
  6. BACTERIOSTATIC WATER [Concomitant]
     Active Substance: WATER
     Indication: Product used for unknown indication
  7. SLEEP TEA [Concomitant]
     Indication: Product used for unknown indication
  8. MELATONIN [Concomitant]
     Active Substance: MELATONIN
     Indication: Insomnia
     Dosage: 3 MILLIGRAM, QD
     Route: 048
  9. MELATONIN [Concomitant]
     Active Substance: MELATONIN
     Dosage: 10 MILLIGRAM
  10. HUMALOG KWIKPEN [Concomitant]
     Active Substance: INSULIN LISPRO
     Indication: Hyperglycaemia
     Dosage: VARIABLE, PRN
     Route: 058
  11. TOUJEO [Concomitant]
     Active Substance: INSULIN GLARGINE
     Indication: Hyperglycaemia
     Dosage: 110 UNITS, BID
     Route: 058
  12. LISINOPRIL [Concomitant]
     Active Substance: LISINOPRIL
     Indication: Lipids abnormal
     Dosage: 40 MILLIGRAM, QD
     Route: 048
  13. LISINOPRIL [Concomitant]
     Active Substance: LISINOPRIL
     Dosage: 10 MILLIGRAM
  14. PROAIR HFA [Concomitant]
     Active Substance: ALBUTEROL SULFATE
     Indication: Product used for unknown indication
  15. FLOVENT HFA [Concomitant]
     Active Substance: FLUTICASONE PROPIONATE
     Indication: Product used for unknown indication
  16. GABAPENTIN [Concomitant]
     Active Substance: GABAPENTIN
     Indication: Product used for unknown indication
  17. IBUPROFEN [Concomitant]
     Active Substance: IBUPROFEN
     Indication: Product used for unknown indication
     Dosage: UNK
  18. IBUPROFEN [Concomitant]
     Active Substance: IBUPROFEN
     Dosage: 200 MILLIGRAM
  19. STERILE WATER [Concomitant]
     Active Substance: WATER
     Indication: Product used for unknown indication
     Dosage: UNK
  20. AMLODIPINE [Concomitant]
     Active Substance: AMLODIPINE BESYLATE
     Indication: Blood pressure increased
     Dosage: 10 MILLIGRAM, QD
     Route: 048
  21. ATORVASTATIN [Concomitant]
     Active Substance: ATORVASTATIN
     Indication: Lipids abnormal
     Dosage: 40 MILLIGRAM, QD
     Route: 048
  22. ASPIRIN [Concomitant]
     Active Substance: ASPIRIN
     Indication: Thrombosis prophylaxis
     Dosage: 40 MILLIGRAM, QD
     Route: 058
     Dates: start: 2023
  23. FAMOTIDINE [Concomitant]
     Active Substance: FAMOTIDINE
     Indication: Gastritis
     Dosage: 20 MILLIGRAM, BID
     Route: 048
  24. FAMOTIDINE [Concomitant]
     Active Substance: FAMOTIDINE
     Dosage: 10 MILLIGRAM
  25. FLUTICASONE [Concomitant]
     Active Substance: FLUTICASONE
     Indication: Obstructive airways disorder
     Dosage: 1 DOSAGE FORM, BID
  26. GEMFIBROZIL [Concomitant]
     Active Substance: GEMFIBROZIL
     Indication: Lipids abnormal
     Dosage: 600 MILLIGRAM, BID
     Route: 048
  27. EMPAGLIFLOZIN [Concomitant]
     Active Substance: EMPAGLIFLOZIN
     Indication: Hyperglycaemia
     Dosage: 25 MILLIGRAM, QD
     Route: 048
     Dates: start: 20230602
  28. INSULIN LISPRO [Concomitant]
     Active Substance: INSULIN LISPRO
     Indication: Hyperglycaemia
     Dosage: UNK, PRN
     Route: 058
  29. VENTOLIN HFA [Concomitant]
     Active Substance: ALBUTEROL SULFATE
     Indication: Product used for unknown indication
     Dosage: 90 MICROGRAM AER AD
  30. RYBELSUS [Concomitant]
     Active Substance: SEMAGLUTIDE
     Indication: Product used for unknown indication
  31. DOCUSATE SODIUM\SENNA LEAF [Concomitant]
     Active Substance: DOCUSATE SODIUM\SENNA LEAF
     Indication: Product used for unknown indication
  32. MIRALAX [Concomitant]
     Active Substance: POLYETHYLENE GLYCOL 3350
     Indication: Product used for unknown indication
     Dosage: 17 G/DOSE POWDER
  33. BENADRYL [Concomitant]
     Active Substance: DIPHENHYDRAMINE HYDROCHLORIDE
     Indication: Product used for unknown indication
  34. JARDIANCE [Concomitant]
     Active Substance: EMPAGLIFLOZIN
     Indication: Product used for unknown indication
     Dosage: UNK
  35. ATORVASTATIN CALCIUM [Concomitant]
     Active Substance: ATORVASTATIN CALCIUM
     Indication: Product used for unknown indication
  36. AMLODIPINE BESYLATE [Concomitant]
     Active Substance: AMLODIPINE BESYLATE
     Indication: Product used for unknown indication

REACTIONS (24)
  - Diabetic ketoacidosis [Unknown]
  - Hospitalisation [Unknown]
  - Pancreatitis relapsing [Recovered/Resolved]
  - Blood triglycerides increased [Recovering/Resolving]
  - Cyst rupture [Unknown]
  - Diabetes mellitus [Unknown]
  - Hypertriglyceridaemia [Recovering/Resolving]
  - Pain [Unknown]
  - Xanthoma [Recovering/Resolving]
  - Anxiety [Not Recovered/Not Resolved]
  - Initial insomnia [Not Recovered/Not Resolved]
  - Metabolic disorder [Unknown]
  - Leptin level decreased [Unknown]
  - Insulin resistance [Recovering/Resolving]
  - Hyperphagia [Unknown]
  - Drug specific antibody present [Unknown]
  - Neutralising antibodies positive [Unknown]
  - Incorrect route of product administration [Unknown]
  - Expired product administered [Unknown]
  - Product preparation issue [Unknown]
  - Physical product label issue [Unknown]
  - Drug ineffective [Unknown]
  - Product container issue [Unknown]
  - Therapy cessation [Unknown]
